FAERS Safety Report 7779597-X (Version None)
Quarter: 2011Q3

REPORT INFORMATION
  Report Type: 
  Country: None (occurrence: None)
  Receive Date: 20110927
  Receipt Date: 20110920
  Transmission Date: 20111222
  Serious: Yes (Life-Threatening, Hospitalization, Other)
  Sender: FDA-Public Use
  Company Number: CA-CELGENEUS-028-C5013-10102641

PATIENT
  Sex: Female

DRUGS (4)
  1. MELPHALAN HYDROCHLORIDE [Suspect]
     Indication: MULTIPLE MYELOMA
     Dosage: 10 MILLIGRAM
     Route: 065
     Dates: start: 20100909, end: 20100912
  2. THALIDOMIDE [Suspect]
     Indication: MULTIPLE MYELOMA
     Dosage: 200 MILLIGRAM
     Route: 048
     Dates: start: 20100909, end: 20100920
  3. PREDNISONE [Suspect]
     Indication: MULTIPLE MYELOMA
     Dosage: 145 MILLIGRAM
     Route: 065
     Dates: start: 20100909, end: 20100912
  4. ASPIRIN [Concomitant]
     Dosage: 81 MILLIGRAM
     Route: 048
     Dates: start: 20100909, end: 20100920

REACTIONS (2)
  - ANAEMIA [None]
  - SPINAL CORD COMPRESSION [None]
